FAERS Safety Report 6988013-7 (Version None)
Quarter: 2010Q3

REPORT INFORMATION
  Report Type: 
  Country: None (occurrence: None)
  Receive Date: 20100916
  Receipt Date: 20100908
  Transmission Date: 20110219
  Serious: Yes (Other)
  Sender: FDA-Public Use
  Company Number: JP-ABBOTT-10P-087-0659318-00

PATIENT
  Sex: Female
  Weight: 46 kg

DRUGS (11)
  1. HUMIRA [Suspect]
     Indication: RHEUMATOID ARTHRITIS
     Route: 058
     Dates: start: 20091211, end: 20100205
  2. METHOTREXATE [Concomitant]
     Indication: RHEUMATOID ARTHRITIS
     Dosage: WEEKLY DOSE: 8MG
  3. METHYLPREDNISOLONE [Concomitant]
     Indication: RHEUMATOID ARTHRITIS
     Dosage: DAILY DOSE: 6MG
     Route: 048
  4. CALCIUM FOLINATE [Concomitant]
     Indication: PROPHYLAXIS
  5. CALCIUM FOLINATE [Concomitant]
     Indication: ADVERSE DRUG REACTION
  6. ALFACALCIDOL [Concomitant]
     Indication: OSTEOPOROSIS PROPHYLAXIS
  7. DICLOFENAC SODIUM [Concomitant]
     Indication: RHEUMATOID ARTHRITIS
  8. TEPRENONE [Concomitant]
     Indication: PROPHYLAXIS
  9. TEPRENONE [Concomitant]
     Indication: ADVERSE DRUG REACTION
  10. CHINESE MEDICINE [Concomitant]
     Indication: PROPHYLAXIS
  11. CHINESE MEDICINE [Concomitant]
     Indication: ADVERSE DRUG REACTION

REACTIONS (1)
  - AMNESIA [None]
